FAERS Safety Report 23983877 (Version 1)
Quarter: 2024Q2

REPORT INFORMATION
  Report Type: Spontaneous
  Country: JP (occurrence: JP)
  Receive Date: 20240618
  Receipt Date: 20240618
  Transmission Date: 20240715
  Serious: Yes (Other)
  Sender: FDA-Public Use
  Company Number: JP-AMGEN-JPNSP2023191018

PATIENT
  Sex: Female

DRUGS (4)
  1. BLINCYTO [Suspect]
     Active Substance: BLINATUMOMAB
     Indication: Product used for unknown indication
     Dosage: UNK, CONTINUING IV DRIP INFUSION
     Route: 042
     Dates: start: 20231023, end: 20231120
  2. BLINCYTO [Suspect]
     Active Substance: BLINATUMOMAB
     Dosage: UNK, CONTINUING IV DRIP INFUSION
     Route: 042
     Dates: start: 20231201
  3. BLINCYTO [Suspect]
     Active Substance: BLINATUMOMAB
     Dosage: UNK, CONTINUING IV DRIP INFUSION, CYCLE 6
     Route: 042
     Dates: start: 20240523
  4. RASBURICASE [Concomitant]
     Active Substance: RASBURICASE

REACTIONS (3)
  - Disease recurrence [Recovered/Resolved]
  - Erythema [Recovered/Resolved]
  - Pyrexia [Recovered/Resolved]

NARRATIVE: CASE EVENT DATE: 20231023
